FAERS Safety Report 5127156-X (Version None)
Quarter: 2006Q4

REPORT INFORMATION
  Report Type: 
  Country: None (occurrence: None)
  Receive Date: 20061010
  Receipt Date: 20060929
  Transmission Date: 20070319
  Serious: Yes (Hospitalization, Other)
  Sender: FDA-Public Use
  Company Number: 2006108962

PATIENT
  Age: 58 Year
  Sex: Female

DRUGS (2)
  1. NORVASC [Suspect]
     Indication: HYPERTENSION
     Dosage: 5 MG (5 MG, 1 IN 1 D), ORAL
     Route: 048
     Dates: start: 20060717, end: 20060906
  2. LEFTOSE (LYSOZYME) [Suspect]
     Indication: PHARYNGOLARYNGEAL DISCOMFORT
     Dosage: 3 TABLETS (3 IN 1 D), ORAL
     Route: 048
     Dates: start: 20060301, end: 20060906

REACTIONS (6)
  - BLOOD PRESSURE INADEQUATELY CONTROLLED [None]
  - EOSINOPHILIC PNEUMONIA [None]
  - HYPEREOSINOPHILIC SYNDROME [None]
  - HYPERTENSION [None]
  - LUNG CONSOLIDATION [None]
  - PERICARDIAL EFFUSION [None]
